FAERS Safety Report 17323102 (Version 1)
Quarter: 2020Q1

REPORT INFORMATION
  Report Type: Spontaneous
  Country: US (occurrence: US)
  Receive Date: 20200108
  Receipt Date: 20200108
  Transmission Date: 20200409
  Serious: No
  Sender: FDA-Public Use
  Company Number: None

PATIENT
  Age: 25 Year
  Sex: Female
  Weight: 60.9 kg

DRUGS (6)
  1. CYTARABINE. [Suspect]
     Active Substance: CYTARABINE
     Dates: end: 20191210
  2. DEXAMETHASONE. [Suspect]
     Active Substance: DEXAMETHASONE
     Dates: end: 20191231
  3. DAUNORUBICIN [Suspect]
     Active Substance: DAUNORUBICIN
     Dates: end: 20200101
  4. VINCRISTINE SULFATE. [Suspect]
     Active Substance: VINCRISTINE SULFATE
     Dates: end: 20200101
  5. METHOTREXATE. [Suspect]
     Active Substance: METHOTREXATE
     Dates: end: 20191210
  6. ONCASPAR [Suspect]
     Active Substance: PEGASPARGASE
     Dates: end: 20191214

REACTIONS (11)
  - Bundle branch block right [None]
  - Nausea [None]
  - Heart rate increased [None]
  - Dyspnoea [None]
  - Dizziness [None]
  - Supraventricular tachycardia [None]
  - Chest discomfort [None]
  - Hyperhidrosis [None]
  - Cardiac flutter [None]
  - Headache [None]
  - Blood pressure decreased [None]

NARRATIVE: CASE EVENT DATE: 20200106
